FAERS Safety Report 7518193-6 (Version None)
Quarter: 2011Q2

REPORT INFORMATION
  Report Type: 
  Country: None (occurrence: None)
  Receive Date: 20110531
  Receipt Date: 20110531
  Transmission Date: 20111010
  Serious: Yes (Other)
  Sender: FDA-Public Use
  Company Number: None

PATIENT
  Sex: Female

DRUGS (2)
  1. ATENOLOL [Suspect]
     Indication: HYPERTENSION
     Dosage: 25MG DAILY ORAL
     Route: 048
     Dates: start: 20070329
  2. ATENOLOL [Suspect]
     Indication: HYPERTENSION
     Dosage: 25MG DAILY ORAL
     Route: 048
     Dates: start: 20070212

REACTIONS (3)
  - PRODUCT SUBSTITUTION ISSUE [None]
  - NAUSEA [None]
  - PANIC ATTACK [None]
